FAERS Safety Report 21525728 (Version 14)
Quarter: 2023Q4

REPORT INFORMATION
  Report Type: Report from Study
  Country: CL (occurrence: CL)
  Receive Date: 20221031
  Receipt Date: 20231129
  Transmission Date: 20240110
  Serious: Yes (Other)
  Sender: FDA-Public Use
  Company Number: CL-NOVARTISPH-NVSC2022CL102048

PATIENT
  Age: 67 Year
  Sex: Female

DRUGS (20)
  1. KISQALI [Suspect]
     Active Substance: RIBOCICLIB
     Indication: Breast cancer
     Dosage: 600 MG, QD
     Route: 048
     Dates: start: 20220506
  2. KISQALI [Suspect]
     Active Substance: RIBOCICLIB
     Dosage: 600 MG, QD
     Route: 048
     Dates: start: 20220506
  3. KISQALI [Suspect]
     Active Substance: RIBOCICLIB
     Dosage: 600 MG, QD
     Route: 048
     Dates: start: 20220506
  4. KISQALI [Suspect]
     Active Substance: RIBOCICLIB
     Dosage: 600 MG, QD
     Route: 048
     Dates: start: 20220506
  5. KISQALI [Suspect]
     Active Substance: RIBOCICLIB
     Dosage: 600 MG, QD (ONCE A DAY)
     Route: 048
     Dates: start: 20220506
  6. KISQALI [Suspect]
     Active Substance: RIBOCICLIB
     Dosage: 600 MG, QD  3 TABLETS (FOR 21 DAYS)
     Route: 048
     Dates: start: 20220530
  7. KISQALI [Suspect]
     Active Substance: RIBOCICLIB
     Dosage: 600 MG, QD
     Route: 048
     Dates: start: 202207
  8. KISQALI [Suspect]
     Active Substance: RIBOCICLIB
     Dosage: 600 MG
     Route: 065
     Dates: start: 20230315
  9. LETROZOLE [Suspect]
     Active Substance: LETROZOLE
     Indication: Breast cancer
     Dosage: 1 DOSAGE FORM, QD
     Route: 048
     Dates: start: 2020
  10. LETROZOLE [Suspect]
     Active Substance: LETROZOLE
     Dosage: UNK, QD (ONCE A DAY)
     Route: 048
     Dates: start: 2020
  11. LETROZOLE [Suspect]
     Active Substance: LETROZOLE
     Dosage: UNK
     Route: 065
     Dates: start: 20220613, end: 20220621
  12. LETROZOLE [Suspect]
     Active Substance: LETROZOLE
     Dosage: UNK
     Route: 065
     Dates: start: 20220627
  13. FULVESTRANT [Suspect]
     Active Substance: FULVESTRANT
     Indication: Breast cancer
     Dosage: UNK, QD
     Route: 048
     Dates: start: 2020
  14. FULVESTRANT [Suspect]
     Active Substance: FULVESTRANT
     Dosage: UNK 2 AMPOULES (EVERY 28 DAYS PERMANENT 50 MG/ML)
     Route: 065
     Dates: start: 20220530
  15. FULVESTRANT [Suspect]
     Active Substance: FULVESTRANT
     Dosage: UNK
     Route: 065
  16. FULVESTRANT [Suspect]
     Active Substance: FULVESTRANT
     Dosage: UNK (11TH CYCLE)
     Route: 065
  17. FULVESTRANT [Suspect]
     Active Substance: FULVESTRANT
     Dosage: 500 MG, QMO
     Route: 030
     Dates: start: 202207
  18. ZOMETA [Suspect]
     Active Substance: ZOLEDRONIC ACID
     Indication: Product used for unknown indication
     Dosage: UNK, (AMPOULE (1 OF 4 MG, INTRAVENOUS SUBCLAVIAN CATHETER, EVERY 12 WEEKS)
     Route: 042
     Dates: start: 202302
  19. ZOMETA [Suspect]
     Active Substance: ZOLEDRONIC ACID
     Dosage: 4 MG, (EVERY 12 WEEKS) (1 AMPOULE)
     Route: 065
     Dates: start: 20230718
  20. TAMOXIFEN [Concomitant]
     Active Substance: TAMOXIFEN
     Indication: Product used for unknown indication
     Dosage: UNK
     Route: 065

REACTIONS (29)
  - Leukopenia [Unknown]
  - Metastases to bone [Unknown]
  - Capillary disorder [Unknown]
  - Temperature intolerance [Unknown]
  - Nail disorder [Unknown]
  - Initial insomnia [Unknown]
  - COVID-19 [Unknown]
  - Vein disorder [Unknown]
  - Visual impairment [Unknown]
  - Memory impairment [Unknown]
  - Nasal congestion [Unknown]
  - Osteolysis [Unknown]
  - Blood cholesterol increased [Unknown]
  - Low density lipoprotein abnormal [Unknown]
  - Blood thyroid stimulating hormone increased [Unknown]
  - Aspartate aminotransferase abnormal [Unknown]
  - Alanine aminotransferase abnormal [Unknown]
  - Macrocytosis [Unknown]
  - Polychromasia [Not Recovered/Not Resolved]
  - Anisocytosis [Not Recovered/Not Resolved]
  - Elliptocytosis [Not Recovered/Not Resolved]
  - Skin exfoliation [Unknown]
  - Hypersensitivity [Unknown]
  - Alopecia [Unknown]
  - Pain [Unknown]
  - Influenza [Unknown]
  - Nasopharyngitis [Recovered/Resolved]
  - Cough [Recovered/Resolved]
  - Product dose omission in error [Unknown]

NARRATIVE: CASE EVENT DATE: 20230614
